FAERS Safety Report 23671322 (Version 1)
Quarter: 2024Q1

REPORT INFORMATION
  Report Type: Spontaneous
  Country: US (occurrence: US)
  Receive Date: 20240326
  Receipt Date: 20240326
  Transmission Date: 20240409
  Serious: No
  Sender: FDA-Public Use
  Company Number: US-JNJFOC-20240328259

PATIENT
  Age: 8 Decade
  Sex: Female

DRUGS (1)
  1. IMODIUM MULTI-SYMPTOM RELIEF [Suspect]
     Active Substance: DIMETHICONE\LOPERAMIDE HYDROCHLORIDE
     Indication: Diarrhoea
     Dosage: PRODUCT STARTED 3-4 WEEKS AGO, 2 CAPLETS EACH TIME
     Route: 065
     Dates: start: 202402

REACTIONS (2)
  - Diarrhoea [Not Recovered/Not Resolved]
  - Overdose [Unknown]
